FAERS Safety Report 5872022-5 (Version None)
Quarter: 2008Q3

REPORT INFORMATION
  Report Type: 
  Country: None (occurrence: None)
  Receive Date: 20080902
  Receipt Date: 20080820
  Transmission Date: 20090109
  Serious: Yes (Other)
  Sender: FDA-Public Use
  Company Number: 1000000688

PATIENT
  Age: 18 Year
  Sex: Female

DRUGS (4)
  1. CITALOPRAM HYDROBROMIDE [Suspect]
     Dosage: 400 MG (400 MG, ONCE), ORAL
     Route: 048
     Dates: start: 20080809, end: 20080809
  2. TAXILAN [Suspect]
     Dosage: 3000 MG (3000 MG, ONCE), ORAL
     Route: 048
     Dates: start: 20080809, end: 20080809
  3. VALPROATE SODIUM [Suspect]
     Dosage: 6000 MG, ONCE, ORAL
     Route: 048
     Dates: start: 20080809, end: 20080809
  4. ZELDOX (80 MILLIGRAM, TABLETS) [Suspect]
     Dosage: 1760 MG, ONCE, ORAL
     Route: 048
     Dates: start: 20080809, end: 20080809

REACTIONS (4)
  - ARRHYTHMIA [None]
  - INTENTIONAL OVERDOSE [None]
  - SOMNOLENCE [None]
  - SUICIDE ATTEMPT [None]
